FAERS Safety Report 20835790 (Version 1)
Quarter: 2022Q2

REPORT INFORMATION
  Report Type: Report from Study
  Country: US (occurrence: US)
  Receive Date: 20220516
  Receipt Date: 20220516
  Transmission Date: 20220721
  Serious: Yes (Hospitalization, Other)
  Sender: FDA-Public Use
  Company Number: US-HORIZON THERAPEUTICS-HZN-2022-003499

PATIENT

DRUGS (5)
  1. RAYOS [Suspect]
     Active Substance: PREDNISONE
     Indication: Product used for unknown indication
     Dosage: UNK
     Route: 065
  2. REMODULIN [Suspect]
     Active Substance: TREPROSTINIL
     Indication: Pulmonary arterial hypertension
     Dosage: CONCENTRATION : 5.0 MG/ML, IV DRIP
     Route: 041
     Dates: start: 20191230
  3. REMODULIN [Suspect]
     Active Substance: TREPROSTINIL
     Dosage: 0.11 UG/KG, IV DRIP
     Route: 042
     Dates: end: 20220420
  4. SILDENAFIL CITRATE [Concomitant]
     Active Substance: SILDENAFIL CITRATE
     Dosage: UNK
  5. OFEV [Concomitant]
     Active Substance: NINTEDANIB

REACTIONS (3)
  - Diverticulitis [Unknown]
  - Pulmonary hypertension [Unknown]
  - Hypoxia [Unknown]

NARRATIVE: CASE EVENT DATE: 20220404
